FAERS Safety Report 13326446 (Version 1)
Quarter: 2017Q1

REPORT INFORMATION
  Report Type: Spontaneous
  Country: US (occurrence: US)
  Receive Date: 20170308
  Receipt Date: 20170308
  Transmission Date: 20170428
  Serious: Yes (Other)
  Sender: FDA-Public Use
  Company Number: US-AMGEN-USASP2017034433

PATIENT
  Sex: Female
  Weight: .86 kg

DRUGS (7)
  1. SODIUM ACETATE. [Suspect]
     Active Substance: SODIUM ACETATE
     Indication: INTESTINAL VILLI ATROPHY
     Dosage: 17 MEQ/L, UNK
     Route: 050
  2. HUMAN SERUM ALBUMIN [Suspect]
     Active Substance: ALBUMIN HUMAN
     Indication: INTESTINAL VILLI ATROPHY
     Dosage: UNK
     Route: 050
  3. INDOMETHACIN. [Concomitant]
     Active Substance: INDOMETHACIN
     Indication: PROPHYLAXIS
     Dosage: UNK
  4. EPOGEN [Suspect]
     Active Substance: ERYTHROPOIETIN
     Indication: INTESTINAL VILLI ATROPHY
     Dosage: 4400 MU/ML
     Route: 050
  5. NEUPOGEN [Suspect]
     Active Substance: FILGRASTIM
     Indication: INTESTINAL VILLI ATROPHY
     Dosage: 225 NG/ML, UNK
     Route: 050
  6. POTASSIUM CHLORIDE. [Suspect]
     Active Substance: POTASSIUM CHLORIDE
     Indication: INTESTINAL VILLI ATROPHY
     Dosage: 4 MEQ/L, UNK
     Route: 050
  7. SODIUM CHLORIDE. [Suspect]
     Active Substance: SODIUM CHLORIDE
     Indication: INTESTINAL VILLI ATROPHY
     Dosage: 115 MEQ/L, UNK
     Route: 050

REACTIONS (1)
  - Necrotising colitis [Unknown]
